FAERS Safety Report 6790454-8 (Version None)
Quarter: 2010Q2

REPORT INFORMATION
  Report Type: 
  Country: None (occurrence: None)
  Receive Date: 20100624
  Receipt Date: 20100617
  Transmission Date: 20101027
  Serious: Yes (Death)
  Sender: FDA-Public Use
  Company Number: JP-ROCHE-698520

PATIENT
  Sex: Female

DRUGS (9)
  1. TOCILIZUMAB [Suspect]
     Indication: RHEUMATOID ARTHRITIS
     Route: 048
     Dates: start: 20081112, end: 20081112
  2. TOCILIZUMAB [Suspect]
     Route: 048
     Dates: start: 20081211, end: 20081211
  3. TOCILIZUMAB [Suspect]
     Route: 048
     Dates: start: 20090107, end: 20090107
  4. TOCILIZUMAB [Suspect]
     Route: 048
     Dates: start: 20090202, end: 20090202
  5. TOCILIZUMAB [Suspect]
     Route: 048
     Dates: start: 20090304, end: 20090304
  6. TOCILIZUMAB [Suspect]
     Route: 048
     Dates: start: 20090401, end: 20090401
  7. TOCILIZUMAB [Suspect]
     Route: 048
     Dates: start: 20090511, end: 20090511
  8. MEDROL [Concomitant]
     Route: 048
     Dates: start: 20031110, end: 20090101
  9. CELCOX [Concomitant]
     Route: 048
     Dates: start: 20081110, end: 20090101

REACTIONS (2)
  - MELAENA [None]
  - SHOCK HAEMORRHAGIC [None]
